FAERS Safety Report 20783356 (Version 1)
Quarter: 2022Q2

REPORT INFORMATION
  Report Type: Spontaneous
  Country: GB (occurrence: GB)
  Receive Date: 20220504
  Receipt Date: 20220504
  Transmission Date: 20220720
  Serious: Yes (Disabling, Other)
  Sender: FDA-Public Use
  Company Number: None

PATIENT
  Age: 48 Year
  Sex: Male
  Weight: 83.46 kg

DRUGS (6)
  1. CIPROFLOXACIN [Suspect]
     Active Substance: CIPROFLOXACIN
     Indication: Prostatitis
     Route: 048
     Dates: start: 20191007, end: 20191009
  2. COCODAMOL [Concomitant]
     Active Substance: ACETAMINOPHEN\CODEINE PHOSPHATE
     Indication: Ill-defined disorder
  3. PERINDOPRIL ERBUMINE [Concomitant]
     Active Substance: PERINDOPRIL ERBUMINE
     Indication: Ill-defined disorder
  4. ACCORD HEALTHCARE PREGABALIN [Concomitant]
     Indication: Ill-defined disorder
  5. MESALAMINE [Concomitant]
     Active Substance: MESALAMINE
     Indication: Ill-defined disorder
  6. LANSOPRAZOLE [Concomitant]
     Active Substance: LANSOPRAZOLE
     Indication: Ill-defined disorder

REACTIONS (5)
  - Tinnitus [Not Recovered/Not Resolved]
  - Product prescribing issue [Unknown]
  - Tendon pain [Unknown]
  - Deafness [Unknown]
  - Myalgia [Unknown]

NARRATIVE: CASE EVENT DATE: 20191007
